FAERS Safety Report 8320677-8 (Version None)
Quarter: 2012Q2

REPORT INFORMATION
  Report Type: 
  Country: None (occurrence: None)
  Receive Date: 20120430
  Receipt Date: 20120424
  Transmission Date: 20120825
  Serious: No
  Sender: FDA-Public Use
  Company Number: US-PFIZER INC-2012101666

PATIENT
  Sex: Female
  Weight: 147.39 kg

DRUGS (5)
  1. ZOLOFT [Suspect]
     Indication: DEPRESSION
     Dosage: 100 MG, 1X/DAY
     Route: 048
  2. CELEBREX [Concomitant]
     Indication: DYSTONIA
     Dosage: UNK
  3. DICLOFENAC [Concomitant]
     Indication: DYSTONIA
     Dosage: UNK
  4. LYRICA [Concomitant]
     Indication: DYSTONIA
     Dosage: UNK
  5. ZOLOFT [Suspect]
     Indication: ANXIETY
     Dosage: UNK
     Route: 048

REACTIONS (1)
  - HEPATIC STEATOSIS [None]
